FAERS Safety Report 7104994-5 (Version None)
Quarter: 2010Q4

REPORT INFORMATION
  Report Type: 
  Country: None (occurrence: None)
  Receive Date: 20101116
  Receipt Date: 20101108
  Transmission Date: 20110411
  Serious: Yes (Hospitalization)
  Sender: FDA-Public Use
  Company Number: PHHO2007HU01689

PATIENT
  Sex: Male
  Weight: 13 kg

DRUGS (1)
  1. ELIDEL [Suspect]
     Indication: DERMATITIS ATOPIC
     Dosage: APPLIED TWICE DAILY
     Route: 061
     Dates: start: 20041203

REACTIONS (15)
  - BRONCHIAL OBSTRUCTION [None]
  - BRONCHITIS [None]
  - EAR PAIN [None]
  - GASTROENTERITIS [None]
  - LETHARGY [None]
  - LEUKOCYTOSIS [None]
  - LYMPHADENOPATHY [None]
  - MORAXELLA INFECTION [None]
  - OTITIS MEDIA [None]
  - PNEUMONIA [None]
  - PYREXIA [None]
  - RED BLOOD CELL SEDIMENTATION RATE INCREASED [None]
  - SINUSITIS [None]
  - STAPHYLOCOCCAL INFECTION [None]
  - UPPER RESPIRATORY TRACT INFECTION [None]
